FAERS Safety Report 13688187 (Version 3)
Quarter: 2017Q3

REPORT INFORMATION
  Report Type: Spontaneous
  Country: JP (occurrence: JP)
  Receive Date: 20170626
  Receipt Date: 20170905
  Transmission Date: 20171127
  Serious: Yes (Death, Hospitalization, Other)
  Sender: FDA-Public Use
  Company Number: JP-009507513-1706JPN002190J

PATIENT
  Age: 78 Year
  Sex: Male

DRUGS (1)
  1. GLACTIV [Suspect]
     Active Substance: SITAGLIPTIN
     Dosage: UNK
     Route: 048

REACTIONS (2)
  - Hepatocellular carcinoma [Fatal]
  - Pemphigoid [Fatal]
